FAERS Safety Report 23240408 (Version 2)
Quarter: 2024Q3

REPORT INFORMATION
  Report Type: Spontaneous
  Country: SE (occurrence: SE)
  Receive Date: 20231129
  Receipt Date: 20240809
  Transmission Date: 20241017
  Serious: Yes (Death, Hospitalization, Other)
  Sender: BRAEBURN PHARMACEUTICALS
  Company Number: SE-BRAEBURN INC-2023BBN00078

PATIENT
  Age: 32 Year
  Sex: Female

DRUGS (5)
  1. BUPRENORPHINE [Suspect]
     Active Substance: BUPRENORPHINE
     Indication: Product used for unknown indication
     Dosage: 32 MILLIGRAM, WEEKLY
     Route: 065
     Dates: start: 202204, end: 20220712
  2. BUPRENORPHINE [Suspect]
     Active Substance: BUPRENORPHINE
     Dosage: 160 MILLIGRAM, MONTHLY
     Route: 065
     Dates: end: 202204
  3. TOUJEO [Suspect]
     Active Substance: INSULIN GLARGINE
     Indication: Diabetes mellitus
     Dosage: 300E/ML
     Route: 065
     Dates: start: 20220709, end: 20220710
  4. ALPRAZOLAM [Suspect]
     Active Substance: ALPRAZOLAM
     Indication: Product used for unknown indication
     Dosage: 2 MILLIGRAM
     Route: 065
     Dates: start: 20220710, end: 20220710
  5. ALCOHOL [Suspect]
     Active Substance: ALCOHOL
     Indication: Product used for unknown indication
     Dosage: NOT REPORTED
     Route: 065
     Dates: start: 20220710, end: 20220710

REACTIONS (3)
  - Loss of consciousness [Fatal]
  - Suicide attempt [Unknown]
  - Withdrawal syndrome [Unknown]

NARRATIVE: CASE EVENT DATE: 20220709
